FAERS Safety Report 7587991-5 (Version None)
Quarter: 2011Q3

REPORT INFORMATION
  Report Type: 
  Country: None (occurrence: None)
  Receive Date: 20110705
  Receipt Date: 20110629
  Transmission Date: 20111222
  Serious: No
  Sender: FDA-Public Use
  Company Number: US-PFIZER INC-2011145476

PATIENT
  Sex: Female
  Weight: 52.608 kg

DRUGS (3)
  1. NORVASC [Suspect]
     Indication: ARTERIAL DISORDER
     Dosage: 2.5 MG, DAILY
     Route: 048
     Dates: start: 20110401
  2. AZASITE [Concomitant]
     Indication: INTRAOCULAR PRESSURE TEST ABNORMAL
     Dosage: UNK
     Route: 047
     Dates: start: 20110101
  3. LUMIGAN [Concomitant]
     Indication: INTRAOCULAR PRESSURE TEST ABNORMAL
     Dosage: UNK
     Route: 047
     Dates: start: 20100101

REACTIONS (1)
  - HAIR DISORDER [None]
